FAERS Safety Report 6733506-0 (Version None)
Quarter: 2010Q2

REPORT INFORMATION
  Report Type: 
  Country: None (occurrence: None)
  Receive Date: 20100520
  Receipt Date: 20100520
  Transmission Date: 20101027
  Serious: Yes (Hospitalization)
  Sender: FDA-Public Use
  Company Number: PHHO2009FR13138

PATIENT
  Sex: Female
  Weight: 76 kg

DRUGS (5)
  1. ALISKIREN ALI+TAB+HT [Suspect]
     Indication: ESSENTIAL HYPERTENSION
     Dosage: 150 MG
     Route: 048
     Dates: start: 20090304, end: 20091009
  2. AMLODIPINE [Suspect]
     Indication: HYPERTENSION
     Dosage: 5 MG
     Dates: start: 20090304, end: 20091009
  3. LEVOTHYROXINE SODIUM [Concomitant]
     Indication: THYROID NEOPLASM
  4. OESTRODOSE [Concomitant]
     Indication: MENOPAUSE
     Dosage: UNK
  5. XYZAL [Concomitant]
     Indication: HYPERSENSITIVITY

REACTIONS (3)
  - ABDOMINAL PAIN [None]
  - PYREXIA [None]
  - SIGMOIDITIS [None]
